FAERS Safety Report 7985459-5 (Version None)
Quarter: 2011Q4

REPORT INFORMATION
  Report Type: 
  Country: None (occurrence: None)
  Receive Date: 20111216
  Receipt Date: 20111207
  Transmission Date: 20120403
  Serious: Yes (Other)
  Sender: FDA-Public Use
  Company Number: CHPA2011US016707

PATIENT
  Age: 71 Year
  Sex: Female

DRUGS (2)
  1. VOLTAREN [Suspect]
     Indication: MUSCULOSKELETAL STIFFNESS
     Dosage: 2 G, BID
     Route: 061
     Dates: start: 20111108, end: 20111111
  2. ASPIRIN [Concomitant]
     Dosage: 325 MG, UNK
     Route: 048

REACTIONS (7)
  - APPLICATION SITE RASH [None]
  - SCAB [None]
  - WRONG TECHNIQUE IN DRUG USAGE PROCESS [None]
  - HERPES ZOSTER [None]
  - OFF LABEL USE [None]
  - RASH [None]
  - DRUG ADMINISTERED AT INAPPROPRIATE SITE [None]
